FAERS Safety Report 8765039 (Version 2)
Quarter: 2012Q4

REPORT INFORMATION
  Report Type: 
  Country: US (occurrence: US)
  Receive Date: 20120903
  Receipt Date: 20121008
  Transmission Date: 20130627
  Serious: No
  Sender: FDA-Public Use
  Company Number: US-BIOGENIDEC-2012BI033740

PATIENT
  Sex: Female

DRUGS (1)
  1. TYSABRI [Suspect]
     Indication: MULTIPLE SCLEROSIS
     Route: 042
     Dates: start: 20110324

REACTIONS (5)
  - Gastrointestinal ulcer haemorrhage [Recovered/Resolved]
  - Faeces discoloured [Recovered/Resolved]
  - Gastrointestinal pain [Recovered/Resolved]
  - Mucous stools [Recovered/Resolved]
  - Weight decreased [Unknown]
